FAERS Safety Report 5335935-9 (Version None)
Quarter: 2007Q2

REPORT INFORMATION
  Report Type: 
  Country: None (occurrence: None)
  Receive Date: 20070301
  Receipt Date: 20061025
  Transmission Date: 20071010
  Serious: Yes (Other)
  Sender: FDA-Public Use
  Company Number: US200610005208

PATIENT
  Age: 45 Year
  Sex: Male

DRUGS (1)
  1. SYMBYAX [Suspect]
     Dosage: D/F
     Dates: start: 20060501, end: 20061001

REACTIONS (1)
  - WEIGHT INCREASED [None]
